FAERS Safety Report 5707607-X (Version None)
Quarter: 2008Q2

REPORT INFORMATION
  Report Type: 
  Country: None (occurrence: None)
  Receive Date: 20080416
  Receipt Date: 20080408
  Transmission Date: 20081010
  Serious: Yes (Other)
  Sender: FDA-Public Use
  Company Number: PH-PFIZER INC-2008020976

PATIENT
  Age: 26 Year
  Sex: Female

DRUGS (3)
  1. DEPO-PROVERA SUSPENSION/INJ [Suspect]
     Indication: CONTRACEPTION
     Dosage: FREQ:FIRST INJECTION
     Dates: start: 20070727, end: 20070727
  2. DEPO-PROVERA SUSPENSION/INJ [Suspect]
     Dates: start: 20071027, end: 20071027
  3. DEPO-PROVERA SUSPENSION/INJ [Suspect]
     Dosage: FREQ:LAST INJECTION
     Dates: start: 20080120, end: 20080120

REACTIONS (3)
  - ABORTION SPONTANEOUS [None]
  - DRUG INEFFECTIVE [None]
  - UNINTENDED PREGNANCY [None]
